FAERS Safety Report 19174153 (Version 1)
Quarter: 2021Q2

REPORT INFORMATION
  Report Type: Spontaneous
  Country: US (occurrence: US)
  Receive Date: 20210423
  Receipt Date: 20210423
  Transmission Date: 20210717
  Serious: Yes (Other)
  Sender: FDA-Public Use
  Company Number: US-AMARIN PHARMA, INC.-2021AMR000281

PATIENT
  Sex: Female

DRUGS (1)
  1. VASCEPA [Suspect]
     Active Substance: ICOSAPENT ETHYL
     Indication: BLOOD CHOLESTEROL INCREASED
     Dates: start: 2019

REACTIONS (8)
  - Product adhesion issue [Unknown]
  - Nausea [Unknown]
  - Dyspepsia [Unknown]
  - Product odour abnormal [Unknown]
  - Thyroid cancer [Recovered/Resolved]
  - Product taste abnormal [Unknown]
  - Essential thrombocythaemia [Unknown]
  - Pleomorphic liposarcoma [Unknown]

NARRATIVE: CASE EVENT DATE: 2020
